FAERS Safety Report 19820463 (Version 1)
Quarter: 2021Q3

REPORT INFORMATION
  Report Type: Spontaneous
  Country: RO (occurrence: RO)
  Receive Date: 20210913
  Receipt Date: 20210913
  Transmission Date: 20211014
  Serious: Yes (Other)
  Sender: FDA-Public Use
  Company Number: RO-AUROBINDO-AUR-APL-2021-038399

PATIENT
  Age: 28 Year
  Sex: Male

DRUGS (6)
  1. CARIPRAZINE [Concomitant]
     Active Substance: CARIPRAZINE
     Dosage: 1.5 MILLIGRAM
     Route: 065
  2. CARIPRAZINE [Concomitant]
     Active Substance: CARIPRAZINE
     Indication: PRODUCT USED FOR UNKNOWN INDICATION
     Dosage: 3 MILLIGRAM, ONCE A DAY(3 MILLIGRAM, DAILY)
     Route: 065
  3. LORAZEPAM. [Suspect]
     Active Substance: LORAZEPAM
     Indication: CEREBRAL ATROPHY
     Dosage: 2 MILLIGRAM, ONCE A DAY(2 MILLIGRAM, DAILY)
     Route: 065
  4. ARIPIPRAZOLE. [Suspect]
     Active Substance: ARIPIPRAZOLE
     Indication: CEREBRAL ATROPHY
     Dosage: 10 MILLIGRAM, ONCE A DAY(10 MILLIGRAM, DAILY)
     Route: 065
  5. DEPAKINE CHRONO [Suspect]
     Active Substance: VALPROATE SODIUM
     Indication: CEREBRAL ATROPHY
     Dosage: 1500 MILLIGRAM
     Route: 065
  6. QUETIAPINE. [Suspect]
     Active Substance: QUETIAPINE
     Indication: CEREBRAL ATROPHY
     Dosage: 200 MILLIGRAM, ONCE A DAY(200 MILLIGRAM, DAILY)
     Route: 065

REACTIONS (2)
  - Weight increased [Unknown]
  - Therapeutic response unexpected [Unknown]
